FAERS Safety Report 24812268 (Version 1)
Quarter: 2025Q1

REPORT INFORMATION
  Report Type: Spontaneous
  Country: US (occurrence: US)
  Receive Date: 20250106
  Receipt Date: 20250106
  Transmission Date: 20250408
  Serious: Yes (Hospitalization, Other)
  Sender: RIGEL PHARMACEUTICALS
  Company Number: US-RIGEL Pharmaceuticals INC- 20250100004

PATIENT
  Sex: Male
  Weight: 70.851 kg

DRUGS (1)
  1. TAVALISSE [Suspect]
     Active Substance: FOSTAMATINIB
     Indication: Hyperglycaemia
     Dosage: 100 MG, BID
     Route: 048

REACTIONS (6)
  - Platelet count decreased [Unknown]
  - Liver injury [Unknown]
  - Blood cholesterol increased [Unknown]
  - Off label use [Unknown]
  - Product prescribing issue [Unknown]
  - Blood pressure increased [Unknown]

NARRATIVE: CASE EVENT DATE: 20240101
